FAERS Safety Report 10882716 (Version 2)
Quarter: 2015Q1

REPORT INFORMATION
  Report Type: Spontaneous
  Country: CA (occurrence: CA)
  Receive Date: 20150303
  Receipt Date: 20150304
  Transmission Date: 20150721
  Serious: Yes (Other)
  Sender: FDA-Public Use
  Company Number: CA-PFIZER INC-2015074003

PATIENT
  Age: 4 Year
  Sex: Male

DRUGS (6)
  1. DAUNORUBICIN HYDROCHLORIDE FOR INJECTION [Concomitant]
  2. MERREM [Concomitant]
     Active Substance: MEROPENEM
  3. FLUCONAZOLE. [Suspect]
     Active Substance: FLUCONAZOLE
     Indication: PRODUCT USED FOR UNKNOWN INDICATION
     Dosage: 100 MG, 1X/DAY
     Route: 042
  4. CYTARABINE  INJECTION [Concomitant]
     Active Substance: CYTARABINE
  5. VESANOID [Interacting]
     Active Substance: TRETINOIN
     Indication: PRODUCT USED FOR UNKNOWN INDICATION
     Dosage: 45 MG/M2, 1X/DAY
     Route: 065
  6. AMPHOTERICIN B. [Concomitant]
     Active Substance: AMPHOTERICIN B

REACTIONS (5)
  - Vomiting [Recovered/Resolved]
  - Intracranial pressure increased [Recovered/Resolved]
  - Headache [Recovered/Resolved]
  - Papilloedema [Recovered/Resolved]
  - Drug interaction [Recovered/Resolved]
